FAERS Safety Report 9592465 (Version 1)
Quarter: 2013Q3

REPORT INFORMATION
  Report Type: Spontaneous
  Country: US (occurrence: None)
  Receive Date: 20130927
  Receipt Date: 20130927
  Transmission Date: 20140515
  Serious: Yes (Death, Hospitalization)
  Sender: FDA-Public Use
  Company Number: CABO-13003181

PATIENT
  Age: 53 Year
  Sex: Male

DRUGS (8)
  1. COMETRIQ [Suspect]
     Indication: PROSTATE CANCER
     Route: 048
     Dates: start: 20130326, end: 20130625
  2. OXYCONTIN (OXYCODONE HYDROCHLORIDE) [Concomitant]
  3. OXYCODONE (OXYCODONE) [Concomitant]
  4. OMEPRAZOLE (OMEPRAZOLE) [Concomitant]
  5. PREDNISONE (PREDNISONE) [Concomitant]
  6. VITAMIN B (VITAMIN B COMPLEX) [Concomitant]
  7. TRAMADOL (TRAMADOL) [Concomitant]
  8. FLAXSEED OIL (LINUM USITATISSIMUM SEED OIL) [Concomitant]

REACTIONS (3)
  - Malignant neoplasm progression [None]
  - Platelet count decreased [None]
  - Liver injury [None]
